FAERS Safety Report 8446895-6 (Version None)
Quarter: 2012Q2

REPORT INFORMATION
  Report Type: 
  Country: None (occurrence: None)
  Receive Date: 20120612
  Receipt Date: 20120612
  Transmission Date: 20120825
  Serious: Yes (Hospitalization)
  Sender: FDA-Public Use
  Company Number: None

PATIENT
  Sex: Female
  Weight: 86.8 kg

DRUGS (3)
  1. NEULASTA [Suspect]
     Dosage: 6 MG
  2. TAXOL [Suspect]
     Dosage: 247 MG
  3. IFOSFAMIDE [Suspect]
     Dosage: 9 G

REACTIONS (16)
  - BLOOD PRESSURE DIASTOLIC DECREASED [None]
  - HAEMATOCRIT DECREASED [None]
  - BLOOD GLUCOSE INCREASED [None]
  - HAEMOGLOBIN DECREASED [None]
  - METASTASES TO SPINE [None]
  - FALL [None]
  - BACK PAIN [None]
  - BLOOD PRESSURE SYSTOLIC INCREASED [None]
  - DISEASE PROGRESSION [None]
  - ASTHENIA [None]
  - BLOOD ALBUMIN DECREASED [None]
  - WHITE BLOOD CELL COUNT INCREASED [None]
  - CHEST DISCOMFORT [None]
  - PLATELET COUNT DECREASED [None]
  - LEFT VENTRICULAR HYPERTROPHY [None]
  - SPONDYLITIS [None]
